FAERS Safety Report 6099506-1 (Version None)
Quarter: 2009Q1

REPORT INFORMATION
  Report Type: 
  Country: None (occurrence: None)
  Receive Date: 20090226
  Receipt Date: 20090213
  Transmission Date: 20090719
  Serious: Yes (Other)
  Sender: FDA-Public Use
  Company Number: DSU-2009-00399

PATIENT
  Sex: Male

DRUGS (1)
  1. BENICAR [Suspect]
     Indication: DRUG USE FOR UNKNOWN INDICATION
     Dosage: 40 MG (40 MG, QD), PER ORAOL
     Route: 048
     Dates: start: 20080505

REACTIONS (1)
  - OESOPHAGEAL CARCINOMA [None]
